FAERS Safety Report 5365173-5 (Version None)
Quarter: 2007Q2

REPORT INFORMATION
  Report Type: 
  Country: None (occurrence: None)
  Receive Date: 20070530
  Receipt Date: 20070313
  Transmission Date: 20071010
  Serious: No
  Sender: FDA-Public Use
  Company Number: 2006PV018611

PATIENT
  Age: 54 Year
  Sex: Female
  Weight: 67.1324 kg

DRUGS (6)
  1. BYETTA [Suspect]
     Indication: DIABETES MELLITUS NON-INSULIN-DEPENDENT
     Dosage: 5 MCG;QD; SC; 10 MCG; BID;SC;5 MCG;BID;SC; 10 MCG; SC
     Route: 058
     Dates: start: 20060729, end: 20060701
  2. BYETTA [Suspect]
     Indication: DIABETES MELLITUS NON-INSULIN-DEPENDENT
     Dosage: 5 MCG;QD; SC; 10 MCG; BID;SC;5 MCG;BID;SC; 10 MCG; SC
     Route: 058
     Dates: start: 20060629, end: 20060728
  3. BYETTA [Suspect]
     Indication: DIABETES MELLITUS NON-INSULIN-DEPENDENT
     Dosage: 5 MCG;QD; SC; 10 MCG; BID;SC;5 MCG;BID;SC; 10 MCG; SC
     Route: 058
     Dates: start: 20060701
  4. BYETTA [Suspect]
     Indication: DIABETES MELLITUS NON-INSULIN-DEPENDENT
     Dosage: 5 MCG;QD; SC; 10 MCG; BID;SC;5 MCG;BID;SC; 10 MCG; SC
     Route: 058
     Dates: start: 20061001
  5. CLUCOPHAGE [Concomitant]
  6. LOTREL [Concomitant]

REACTIONS (8)
  - BLOOD GLUCOSE DECREASED [None]
  - DISORIENTATION [None]
  - DISSOCIATION [None]
  - DRUG INTERACTION [None]
  - DRY MOUTH [None]
  - MUSCULAR WEAKNESS [None]
  - NAUSEA [None]
  - TREMOR [None]
